FAERS Safety Report 9349562 (Version 1)
Quarter: 2013Q2

REPORT INFORMATION
  Report Type: Spontaneous
  Country: JP (occurrence: JP)
  Receive Date: 20130614
  Receipt Date: 20130614
  Transmission Date: 20140414
  Serious: Yes (Death)
  Sender: FDA-Public Use
  Company Number: JP-GLAXOSMITHKLINE-B0898736A

PATIENT
  Age: 8 Decade
  Sex: Male

DRUGS (3)
  1. PAXIL [Suspect]
     Indication: DEPRESSION
     Dosage: 12.5MG PER DAY
     Route: 048
  2. NSAID [Concomitant]
     Indication: ANALGESIC THERAPY
     Route: 065
  3. UNKNOWN DRUG [Concomitant]
     Route: 065

REACTIONS (1)
  - Death [Fatal]
